FAERS Safety Report 21023047 (Version 1)
Quarter: 2022Q2

REPORT INFORMATION
  Report Type: Spontaneous
  Country: CA (occurrence: CA)
  Receive Date: 20220629
  Receipt Date: 20220629
  Transmission Date: 20220721
  Serious: Yes (Other)
  Sender: FDA-Public Use
  Company Number: CA-PFIZER INC-202101696816

PATIENT
  Age: 64 Year
  Sex: Female

DRUGS (1)
  1. XELJANZ [Suspect]
     Active Substance: TOFACITINIB CITRATE
     Indication: Rheumatoid arthritis
     Dosage: 5 MG, 2X/DAY
     Dates: end: 20220623

REACTIONS (8)
  - Lip and/or oral cavity cancer [Unknown]
  - Precancerous skin lesion [Unknown]
  - Urinary tract infection [Unknown]
  - Hordeolum [Unknown]
  - Eyelid infection [Unknown]
  - Abscess of eyelid [Unknown]
  - Eye infection [Unknown]
  - Bronchitis [Unknown]

NARRATIVE: CASE EVENT DATE: 20211129
